FAERS Safety Report 15756599 (Version 1)
Quarter: 2018Q4

REPORT INFORMATION
  Report Type: Spontaneous
  Country: FR (occurrence: FR)
  Receive Date: 20181224
  Receipt Date: 20181224
  Transmission Date: 20190205
  Serious: Yes (Hospitalization)
  Sender: FDA-Public Use
  Company Number: FR-ZYDUS-031705

PATIENT
  Sex: Female

DRUGS (7)
  1. ATROPA BELLADONNA EXTRACT/CAFFEINE/PAPAVER SOMNIFERUM TINCTURE/PARACETAMOL [Suspect]
     Active Substance: ACETAMINOPHEN\BELLADONNA LEAF\CAFFEINE\OPIUM
     Indication: PAIN
     Dates: end: 20181119
  2. VALSARTAN. [Suspect]
     Active Substance: VALSARTAN
     Indication: HYPERTENSION
     Route: 048
     Dates: end: 20181119
  3. SULFAMETHOXAZOLE/TRIMETHOPRIM [Suspect]
     Active Substance: SULFAMETHOXAZOLE\TRIMETHOPRIM
     Indication: CONSTIPATION
     Route: 048
     Dates: end: 20181119
  4. METFORMIN [Suspect]
     Active Substance: METFORMIN HYDROCHLORIDE
     Indication: DIABETES MELLITUS
     Route: 048
     Dates: end: 20181119
  5. NICORANDIL [Suspect]
     Active Substance: NICORANDIL
     Indication: ANGINA PECTORIS
     Route: 048
     Dates: end: 20181119
  6. DOMPERIDONE [Suspect]
     Active Substance: DOMPERIDONE
     Indication: PAIN
     Route: 048
     Dates: start: 20181112, end: 20181119
  7. PARACETAMOL [Suspect]
     Active Substance: ACETAMINOPHEN
     Indication: PAIN
     Route: 048
     Dates: end: 20181119

REACTIONS (2)
  - Cell death [Recovering/Resolving]
  - Cholestasis [Recovering/Resolving]

NARRATIVE: CASE EVENT DATE: 20181119
